FAERS Safety Report 8951304 (Version 2)
Quarter: 2013Q1

REPORT INFORMATION
  Report Type: Spontaneous
  Country: US (occurrence: None)
  Receive Date: 20121129
  Receipt Date: 20121205
  Transmission Date: 20140127
  Serious: Yes (Other)
  Sender: FDA-Public Use
  Company Number: JPI-P-026345

PATIENT
  Age: 27 Year
  Sex: Male

DRUGS (5)
  1. XYREM (500 MILLIGRAM/MILLILITERS, SOLUTION) (SODIUM OXYBATE) [Suspect]
     Indication: PRODUCT USED FOR UNKNOWN INDICATION
     Route: 048
     Dates: end: 20121020
  2. CITALOPRAM [Suspect]
     Indication: CATAPLEXY
     Dates: start: 20120702
  3. LEVOFLOXACIN [Suspect]
     Indication: BRONCHITIS
     Dates: end: 20121010
  4. ADALIMUMAB [Concomitant]
  5. CETIRIZINE [Concomitant]

REACTIONS (1)
  - Myoclonic epilepsy [None]
